FAERS Safety Report 21761607 (Version 5)
Quarter: 2024Q1

REPORT INFORMATION
  Report Type: Spontaneous
  Country: US (occurrence: US)
  Receive Date: 20221221
  Receipt Date: 20240228
  Transmission Date: 20240409
  Serious: Yes (Death)
  Sender: FDA-Public Use
  Company Number: US-PFIZER INC-PV202200128175

PATIENT
  Age: 71 Year
  Sex: Female

DRUGS (2)
  1. LORBRENA [Suspect]
     Active Substance: LORLATINIB
     Indication: Lung neoplasm malignant
     Dosage: UNK
     Dates: start: 2021, end: 20230930
  2. LORBRENA [Suspect]
     Active Substance: LORLATINIB
     Indication: Brain cancer metastatic

REACTIONS (2)
  - Death [Fatal]
  - Hypoacusis [Unknown]
